FAERS Safety Report 11706751 (Version 1)
Quarter: 2015Q4

REPORT INFORMATION
  Report Type: Spontaneous
  Country: US (occurrence: US)
  Receive Date: 20151106
  Receipt Date: 20151106
  Transmission Date: 20160304
  Serious: No
  Sender: FDA-Public Use
  Company Number: US-WATSON-2015-20471

PATIENT
  Age: 68 Year
  Sex: Male

DRUGS (1)
  1. ANDRODERM [Suspect]
     Active Substance: TESTOSTERONE
     Indication: BLOOD TESTOSTERONE DECREASED
     Dosage: 4 MG, DAILY
     Route: 062
     Dates: start: 2007

REACTIONS (4)
  - Blood testosterone decreased [Recovering/Resolving]
  - Product quality issue [None]
  - Drug ineffective [Unknown]
  - Device physical property issue [None]
